FAERS Safety Report 5688924-9 (Version None)
Quarter: 2008Q1

REPORT INFORMATION
  Report Type: 
  Country: None (occurrence: None)
  Receive Date: 20080331
  Receipt Date: 20080318
  Transmission Date: 20080703
  Serious: Yes (Other)
  Sender: FDA-Public Use
  Company Number: FR-ROCHE-551829

PATIENT
  Age: 50 Year
  Sex: Female
  Weight: 65 kg

DRUGS (1)
  1. BONIVA [Suspect]
     Indication: OSTEOPOROSIS
     Route: 048
     Dates: start: 20070301

REACTIONS (2)
  - DENTAL CARIES [None]
  - FAILURE OF IMPLANT [None]
